FAERS Safety Report 9790328 (Version 1)
Quarter: 2013Q4

REPORT INFORMATION
  Report Type: Report from Study
  Country: LB (occurrence: LB)
  Receive Date: 20131231
  Receipt Date: 20131231
  Transmission Date: 20140711
  Serious: Yes (Other)
  Sender: FDA-Public Use
  Company Number: LB-SA-2013SA134287

PATIENT
  Age: 70 Year
  Sex: Female

DRUGS (6)
  1. LANTUS SOLOSTAR [Suspect]
     Indication: DIABETES MELLITUS
     Dosage: DOSE: 4-6 UNITS DAILY
     Route: 058
     Dates: start: 2013
  2. APROVEL [Concomitant]
     Route: 048
  3. ASPICOT [Concomitant]
     Route: 048
  4. LASIX [Concomitant]
     Route: 048
  5. EPOETIN NOS [Concomitant]
     Route: 048
  6. SOLOSTAR [Concomitant]
     Dates: start: 2013

REACTIONS (2)
  - Renal failure [Recovering/Resolving]
  - Fluid retention [Recovering/Resolving]
